FAERS Safety Report 17139142 (Version 1)
Quarter: 2019Q4

REPORT INFORMATION
  Report Type: Spontaneous
  Country: ES (occurrence: ES)
  Receive Date: 20191211
  Receipt Date: 20191211
  Transmission Date: 20200122
  Serious: Yes (Other)
  Sender: FDA-Public Use
  Company Number: ES-AUROBINDO-AUR-APL-2019-103130

PATIENT
  Age: 17 Year
  Sex: Male

DRUGS (3)
  1. PACLITAXEL. [Suspect]
     Active Substance: PACLITAXEL
     Indication: NONGERMINOMATOUS GERM CELL TUMOUR OF THE CNS
     Dosage: UNK UNK, CYCLICAL (2 CYCLES) GEMPOX
     Route: 065
  2. GEMCITABINE. [Suspect]
     Active Substance: GEMCITABINE
     Indication: NONGERMINOMATOUS GERM CELL TUMOUR OF THE CNS
     Dosage: UNK UNK, CYCLICAL, (2 CYCLES) GEMPOX
     Route: 065
  3. OXALIPLATIN. [Suspect]
     Active Substance: OXALIPLATIN
     Indication: NONGERMINOMATOUS GERM CELL TUMOUR OF THE CNS
     Dosage: UNK UNK, CYCLICAL (2 CYCLES) GEMPOX
     Route: 065

REACTIONS (1)
  - Haematotoxicity [Unknown]
